FAERS Safety Report 13363266 (Version 1)
Quarter: 2017Q1

REPORT INFORMATION
  Report Type: Spontaneous
  Country: US (occurrence: US)
  Receive Date: 20170323
  Receipt Date: 20170323
  Transmission Date: 20170429
  Serious: Yes (Life-Threatening, Hospitalization, Other)
  Sender: FDA-Public Use
  Company Number: US-WEST-WARD PHARMACEUTICALS CORP.-US-H14001-17-00747

PATIENT
  Age: 30 Year
  Sex: Female

DRUGS (8)
  1. BUPIVICAINE [Suspect]
     Active Substance: BUPIVACAINE
     Route: 040
  2. EPINEPHRINE. [Suspect]
     Active Substance: EPINEPHRINE
     Route: 040
  3. FENTANYL. [Suspect]
     Active Substance: FENTANYL
     Route: 065
  4. BUPIVICAINE [Suspect]
     Active Substance: BUPIVACAINE
     Indication: EPIDURAL ANALGESIA
     Route: 008
  5. LIDOCAINE. [Suspect]
     Active Substance: LIDOCAINE
     Indication: PRODUCT USED FOR UNKNOWN INDICATION
  6. FENTANYL. [Suspect]
     Active Substance: FENTANYL
     Indication: EPIDURAL ANALGESIA
     Route: 008
  7. FENTANYL. [Suspect]
     Active Substance: FENTANYL
     Route: 040
  8. EPINEPHRINE. [Suspect]
     Active Substance: EPINEPHRINE
     Indication: PRODUCT USED FOR UNKNOWN INDICATION
     Route: 008

REACTIONS (8)
  - Spinal anaesthesia [Unknown]
  - Hypotension [Recovered/Resolved]
  - Nausea [Unknown]
  - Maternal exposure during pregnancy [Unknown]
  - Dyspnoea [Unknown]
  - Incorrect drug administration rate [Unknown]
  - Mental status changes [Unknown]
  - Muscular weakness [Unknown]
